FAERS Safety Report 13319218 (Version 2)
Quarter: 2019Q3

REPORT INFORMATION
  Report Type: Report from Study
  Country: IT (occurrence: IT)
  Receive Date: 20170310
  Receipt Date: 20190719
  Transmission Date: 20191004
  Serious: Yes (Death, Life-Threatening, Hospitalization, Disabling, Other)
  Sender: FDA-Public Use
  Company Number: IT-JAZZ-2017-IT-003194

PATIENT
  Age: 4 Year
  Sex: Female
  Weight: 30.25 kg

DRUGS (6)
  1. FUROSEMIDE. [Concomitant]
     Active Substance: FUROSEMIDE
     Indication: FLUID RETENTION
     Dosage: 40MG
     Route: 042
     Dates: start: 20170108, end: 20170114
  2. COLIMICINA                         /00013203/ [Concomitant]
     Active Substance: COLISTIN SULFATE
     Indication: ANTIBIOTIC PROPHYLAXIS
     Dosage: 2250000 IU, QD
     Route: 042
     Dates: start: 20170104, end: 20170114
  3. ONDANSETRON [Concomitant]
     Active Substance: ONDANSETRON
     Indication: PROPHYLAXIS OF NAUSEA AND VOMITING
     Dosage: 24MG
     Route: 042
     Dates: start: 20170108, end: 20170114
  4. TIGECYCLINE. [Concomitant]
     Active Substance: TIGECYCLINE
     Indication: ANTIBIOTIC PROPHYLAXIS
     Dosage: 90
     Route: 042
     Dates: start: 20170104, end: 20170114
  5. DEFITELIO [Suspect]
     Active Substance: DEFIBROTIDE SODIUM
     Indication: PROPHYLAXIS
     Dosage: 25 MG/KG, QD
     Dates: start: 20160112, end: 20170106
  6. AMBISOME [Concomitant]
     Active Substance: AMPHOTERICIN B
     Indication: ANTIFUNGAL PROPHYLAXIS
     Dosage: 70MG
     Route: 042
     Dates: start: 20161206, end: 20170114

REACTIONS (2)
  - Off label use [Unknown]
  - Klebsiella sepsis [Fatal]

NARRATIVE: CASE EVENT DATE: 20160112
